FAERS Safety Report 6388543-5 (Version None)
Quarter: 2009Q4

REPORT INFORMATION
  Report Type: 
  Country: None (occurrence: None)
  Receive Date: 20091001
  Receipt Date: 20091001
  Transmission Date: 20100525
  Serious: Yes (Other)
  Sender: FDA-Public Use
  Company Number: None

PATIENT
  Sex: Female

DRUGS (1)
  1. XYREM [Suspect]
     Indication: NARCOLEPSY
     Dosage: UNSURE 3 X A NIGHT PO
     Route: 048
     Dates: start: 20081020, end: 20090930

REACTIONS (3)
  - DECREASED ACTIVITY [None]
  - RADIAL NERVE PALSY [None]
  - SLEEP DISORDER [None]
